FAERS Safety Report 11948428 (Version 1)
Quarter: 2016Q1

REPORT INFORMATION
  Report Type: Spontaneous
  Country: AT (occurrence: AT)
  Receive Date: 20160125
  Receipt Date: 20160125
  Transmission Date: 20160526
  Serious: Yes (Hospitalization)
  Sender: FDA-Public Use
  Company Number: AT-JNJFOC-20160115473

PATIENT
  Age: 2 Month

DRUGS (2)
  1. TOPAMAX [Suspect]
     Active Substance: TOPIRAMATE
     Indication: MUSCLE SPASMS
     Dosage: LOWER DOSAGE
     Route: 048
  2. TOPAMAX [Suspect]
     Active Substance: TOPIRAMATE
     Indication: MUSCLE SPASMS
     Dosage: OVER 3.75 MG
     Route: 048

REACTIONS (6)
  - Hospitalisation [Unknown]
  - Product use issue [Unknown]
  - Off label use [Unknown]
  - Muscle spasms [Unknown]
  - Hypersomnia [Unknown]
  - Drug administered to patient of inappropriate age [Unknown]
